FAERS Safety Report 6195250-0 (Version None)
Quarter: 2009Q2

REPORT INFORMATION
  Report Type: 
  Country: None (occurrence: None)
  Receive Date: 20090519
  Receipt Date: 20090512
  Transmission Date: 20091009
  Serious: Yes (Death, Life-Threatening, Hospitalization)
  Sender: FDA-Public Use
  Company Number: ES-ELI_LILLY_AND_COMPANY-ES200903005900

PATIENT
  Age: 84 Year
  Sex: Female

DRUGS (3)
  1. HUMALOG MIX 75/25 [Suspect]
     Indication: DIABETES MELLITUS
     Dosage: 40 IU, EACH MORNING
     Dates: start: 20070101
  2. HUMALOG MIX 75/25 [Suspect]
     Dosage: 27 IU, EACH EVENING
     Dates: start: 20070101
  3. FORTEO [Concomitant]
     Indication: INTERVERTEBRAL DISC PROTRUSION
     Dates: start: 20071001, end: 20081001

REACTIONS (4)
  - ACUTE MYOCARDIAL INFARCTION [None]
  - ANGINA PECTORIS [None]
  - MYOCARDIAL INFARCTION [None]
  - PNEUMONIA [None]
